FAERS Safety Report 8605978-8 (Version None)
Quarter: 2012Q3

REPORT INFORMATION
  Report Type: 
  Country: None (occurrence: None)
  Receive Date: 20120820
  Receipt Date: 20120809
  Transmission Date: 20120928
  Serious: Yes (Hospitalization)
  Sender: FDA-Public Use
  Company Number: FR-PFIZER INC-2012197975

PATIENT
  Age: 67 Year
  Sex: Female

DRUGS (11)
  1. EFFEXOR XR [Suspect]
     Indication: DEPRESSION
     Dosage: 75 MG, 1X/DAY
     Route: 048
     Dates: start: 20120701
  2. CREON [Suspect]
     Dosage: 50000 IU, 3X/DAY
     Route: 048
     Dates: start: 20120611
  3. CEFTRIAXONE [Concomitant]
     Dosage: UNK
     Dates: start: 20120611, end: 20120612
  4. VANCOMYCIN [Concomitant]
     Dosage: UNK
     Dates: start: 20120612, end: 20120613
  5. ATARAX [Suspect]
     Dosage: 25 MG, 1X/DAY
     Route: 048
     Dates: start: 20120611, end: 20120615
  6. METRONIDAZOLE [Concomitant]
     Dosage: UNK
     Dates: start: 20120611, end: 20120612
  7. TARGOCID [Suspect]
     Dosage: UNK
     Route: 048
     Dates: start: 20120613, end: 20120626
  8. PAROXETINE [Suspect]
     Dosage: UNK
     Route: 048
     Dates: start: 20120613, end: 20120626
  9. LOVENOX [Suspect]
     Dosage: 0.4 ML, 1X/DAY
     Route: 058
     Dates: start: 20120613
  10. GENTAMICIN [Concomitant]
     Dosage: UNK
     Dates: start: 20120612, end: 20120613
  11. ATENOLOL [Suspect]
     Dosage: 50 MG, 1X/DAY
     Route: 048
     Dates: start: 20120611

REACTIONS (1)
  - VASCULAR PURPURA [None]
